FAERS Safety Report 19907335 (Version 2)
Quarter: 2021Q4

REPORT INFORMATION
  Report Type: Report from Study
  Country: DE (occurrence: DE)
  Receive Date: 20211001
  Receipt Date: 20211110
  Transmission Date: 20220303
  Serious: Yes (Hospitalization)
  Sender: FDA-Public Use
  Company Number: DE-INTERCEPT-CT2021002803

PATIENT
  Age: 74 Year
  Sex: Male
  Weight: 108 kg

DRUGS (14)
  1. OBETICHOLIC ACID [Suspect]
     Active Substance: OBETICHOLIC ACID
     Indication: Non-alcoholic steatohepatitis
     Dosage: 10 MILIGRAM, QD
     Route: 048
     Dates: start: 20170905
  2. JANUMET [Concomitant]
     Active Substance: METFORMIN HYDROCHLORIDE\SITAGLIPTIN PHOSPHATE
     Indication: Type 2 diabetes mellitus
     Dosage: 50/1000 MILLIGRAM, QD
     Route: 048
     Dates: start: 2007, end: 20210921
  3. GLIMEPIRIDE [Concomitant]
     Active Substance: GLIMEPIRIDE
     Indication: Type 2 diabetes mellitus
     Dosage: 4.5 MILLIGRAM, QD
     Route: 048
     Dates: start: 2007, end: 20210921
  4. GLIMEPIRIDE [Concomitant]
     Active Substance: GLIMEPIRIDE
     Dosage: 1 MILLIGRAM, QD
     Route: 048
     Dates: start: 202109
  5. GLIMEPIRIDE [Concomitant]
     Active Substance: GLIMEPIRIDE
     Dosage: 0.5 MILLIGRAM, QD
     Route: 048
     Dates: start: 202109
  6. VOTUM [OLMESARTAN MEDOXOMIL] [Concomitant]
     Indication: Hypertension
     Dosage: 40 MILLIGRAM, QD
     Route: 048
     Dates: start: 2007, end: 20210921
  7. VOTUM [OLMESARTAN MEDOXOMIL] [Concomitant]
     Dosage: 10 MILLIGRAM, QD
     Route: 048
     Dates: start: 202109
  8. ASPIRIN [Concomitant]
     Active Substance: ASPIRIN
     Indication: Coronary artery disease
     Dosage: 100 MILLIGRAM, QD
     Route: 048
     Dates: start: 20190828
  9. ATORVASTATIN [Concomitant]
     Active Substance: ATORVASTATIN
     Indication: Hypercholesterolaemia
     Dosage: 43.3 MILLIGRAM, QD
     Route: 048
     Dates: start: 2021
  10. BISOPROLOL FUMARATE [Concomitant]
     Active Substance: BISOPROLOL FUMARATE
     Indication: Hypertension
     Dosage: 5 MILLIGRAM, BID
     Route: 048
     Dates: start: 2021
  11. METFORMIN\SITAGLIPTIN [Concomitant]
     Active Substance: METFORMIN\SITAGLIPTIN
     Indication: Type 2 diabetes mellitus
     Dosage: 50/1000 MILLIGRAM, QD
     Route: 048
     Dates: start: 2020, end: 202109
  12. LERCANIDIPINE HYDROCHLORIDE [Concomitant]
     Active Substance: LERCANIDIPINE HYDROCHLORIDE
     Indication: Hypertension
     Dosage: 10 MILLIGRAM, BID
     Route: 048
     Dates: start: 2020, end: 202109
  13. JARDIANCE [Concomitant]
     Active Substance: EMPAGLIFLOZIN
     Indication: Type 2 diabetes mellitus
     Dosage: 25 MILLIGRAM, BID
     Route: 048
     Dates: start: 202109
  14. PANTOPRAZOLE [Concomitant]
     Active Substance: PANTOPRAZOLE
     Indication: Gastrointestinal disorder prophylaxis
     Dosage: 40 MILLIGRAM, BID
     Route: 048
     Dates: start: 202109

REACTIONS (3)
  - Cholecystitis acute [Recovered/Resolved]
  - Lower limb fracture [Recovered/Resolved]
  - Post procedural inflammation [Unknown]

NARRATIVE: CASE EVENT DATE: 20210903
